FAERS Safety Report 7330014-3 (Version None)
Quarter: 2011Q1

REPORT INFORMATION
  Report Type: 
  Country: None (occurrence: None)
  Receive Date: 20110303
  Receipt Date: 20100901
  Transmission Date: 20110831
  Serious: Yes (Hospitalization, Other)
  Sender: FDA-Public Use
  Company Number: US-BAYER-201015604NA

PATIENT
  Sex: Female
  Weight: 59 kg

DRUGS (8)
  1. YASMIN [Suspect]
     Indication: PRODUCT USED FOR UNKNOWN INDICATION
     Dosage: AS USED DOSE: UNK
     Route: 048
     Dates: start: 20060301, end: 20080201
  2. ASPIRIN [Concomitant]
  3. COMBIVENT [Concomitant]
  4. ADVAIR DISKUS 100/50 [Concomitant]
     Dosage: UNK UNK, BID
  5. NSAID'S [Concomitant]
     Dates: start: 20000101
  6. FLUCONAZOLE [Concomitant]
     Dosage: 150 MG, UNK
  7. ALBUTEROL INHALER [Concomitant]
  8. ADVAIR DISKUS 100/50 [Concomitant]
     Dosage: 250/50 MCG

REACTIONS (10)
  - PULMONARY EMBOLISM [None]
  - DYSPNOEA [None]
  - CHEST PAIN [None]
  - PULMONARY INFARCTION [None]
  - TACHYCARDIA [None]
  - PLEURAL EFFUSION [None]
  - PYREXIA [None]
  - PLEURITIC PAIN [None]
  - FLANK PAIN [None]
  - RESPIRATORY DISORDER [None]
